FAERS Safety Report 7807894-8 (Version None)
Quarter: 2011Q4

REPORT INFORMATION
  Report Type: 
  Country: None (occurrence: None)
  Receive Date: 20111011
  Receipt Date: 20110926
  Transmission Date: 20120403
  Serious: Yes (Life-Threatening, Hospitalization, Other)
  Sender: FDA-Public Use
  Company Number: KR-WATSON-2011-15915

PATIENT
  Age: 20 Year
  Sex: Female

DRUGS (3)
  1. OLANZAPINE [Suspect]
     Indication: PSYCHOTIC DISORDER
     Dosage: 10 MG, DAILY
     Route: 065
  2. ARIPIPRAZOLE [Suspect]
     Indication: PSYCHOTIC DISORDER
     Dosage: 10 MG, DAILY
     Route: 065
  3. RISPERIDONE [Suspect]
     Indication: PSYCHOTIC DISORDER
     Dosage: 4 MG, DAILY
     Route: 065

REACTIONS (12)
  - PYREXIA [None]
  - EATING DISORDER [None]
  - SEDATION [None]
  - MUSCLE RIGIDITY [None]
  - BLOOD CREATINE PHOSPHOKINASE INCREASED [None]
  - OXYGEN SATURATION DECREASED [None]
  - CATATONIA [None]
  - TACHYCARDIA [None]
  - DROOLING [None]
  - DYSARTHRIA [None]
  - NEUROLEPTIC MALIGNANT SYNDROME [None]
  - HYPOKINESIA [None]
